FAERS Safety Report 12136667 (Version 1)
Quarter: 2016Q1

REPORT INFORMATION
  Report Type: Report from Study
  Country: VE (occurrence: VE)
  Receive Date: 20160302
  Receipt Date: 20160302
  Transmission Date: 20160526
  Serious: Yes (Hospitalization)
  Sender: FDA-Public Use
  Company Number: VE-INCYTE CORPORATION-2016IN001230

PATIENT
  Sex: Male

DRUGS (1)
  1. JAKAFI [Suspect]
     Active Substance: RUXOLITINIB
     Dosage: UNK
     Route: 065
     Dates: start: 20150319

REACTIONS (5)
  - Peripheral swelling [Unknown]
  - Abdominal distension [Unknown]
  - Skin discolouration [Unknown]
  - Disease recurrence [Unknown]
  - Vein disorder [Unknown]
